FAERS Safety Report 9633623 (Version 1)
Quarter: 2013Q4

REPORT INFORMATION
  Report Type: Spontaneous
  Country: US (occurrence: US)
  Receive Date: 20131021
  Receipt Date: 20131021
  Transmission Date: 20140711
  Serious: Yes (Other)
  Sender: FDA-Public Use
  Company Number: US-ELI_LILLY_AND_COMPANY-US201310005104

PATIENT
  Sex: Male

DRUGS (1)
  1. ALIMTA [Suspect]
     Route: 042

REACTIONS (1)
  - Pleural effusion [Unknown]
